FAERS Safety Report 10176363 (Version 1)
Quarter: 2014Q2

REPORT INFORMATION
  Report Type: Spontaneous
  Country: US (occurrence: None)
  Receive Date: 20140515
  Receipt Date: 20140515
  Transmission Date: 20141212
  Serious: Yes (Other)
  Sender: FDA-Public Use
  Company Number: None

PATIENT
  Age: 70 Year
  Sex: Female
  Weight: 65.77 kg

DRUGS (5)
  1. RECLAST NOVARTIS [Suspect]
     Indication: OSTEOPOROSIS
     Dosage: SOLUTION IN ONE IV BAG?ONE INFUSION ONCE YEARLY?INFUSION
     Route: 042
     Dates: start: 20140414
  2. FLUTICASONE [Concomitant]
  3. MULTIVITAMIN [Concomitant]
  4. VITAMIN D3 [Concomitant]
  5. CALCIUM CITRATE [Concomitant]

REACTIONS (1)
  - Hypersensitivity [None]
